FAERS Safety Report 8401457-1 (Version None)
Quarter: 2012Q2

REPORT INFORMATION
  Report Type: 
  Country: None (occurrence: None)
  Receive Date: 20120601
  Receipt Date: 20120530
  Transmission Date: 20120825
  Serious: Yes (Death)
  Sender: FDA-Public Use
  Company Number: PHHY2012NL046370

PATIENT
  Sex: Male

DRUGS (2)
  1. ZOMETA [Suspect]
     Indication: METASTASES TO BONE
     Dosage: 4 MG / 100ML ONCE IN 28 DAYS
  2. ZOMETA [Suspect]
     Dosage: 4 MG / 100ML ONCE IN 28 DAYS
     Dates: start: 20120509

REACTIONS (1)
  - TERMINAL STATE [None]
